FAERS Safety Report 8105707-0 (Version None)
Quarter: 2012Q1

REPORT INFORMATION
  Report Type: 
  Country: None (occurrence: None)
  Receive Date: 20120201
  Receipt Date: 20120119
  Transmission Date: 20120608
  Serious: Yes (Hospitalization, Other)
  Sender: FDA-Public Use
  Company Number: DE-ELI_LILLY_AND_COMPANY-DE201201005471

PATIENT
  Sex: Female

DRUGS (4)
  1. NOVALGIN                           /06276704/ [Concomitant]
     Dosage: UNK
     Route: 065
  2. VITAMIN D [Concomitant]
     Dosage: UNK
     Route: 065
  3. FORTEO [Suspect]
     Indication: OSTEOPOROSIS
     Dosage: UNK, QD
     Route: 058
     Dates: start: 20110413
  4. CALCIUM [Concomitant]
     Dosage: UNK
     Route: 065

REACTIONS (3)
  - WEIGHT DECREASED [None]
  - INJECTION SITE HAEMATOMA [None]
  - SKIN CANCER [None]
